FAERS Safety Report 9898061 (Version 3)
Quarter: 2014Q4

REPORT INFORMATION
  Report Type: Spontaneous
  Country: US (occurrence: US)
  Receive Date: 20140214
  Receipt Date: 20141028
  Transmission Date: 20150529
  Serious: Yes (Hospitalization, Other)
  Sender: FDA-Public Use
  Company Number: US-009507513-1402USA006611

PATIENT
  Sex: Female
  Weight: 63.49 kg

DRUGS (1)
  1. NUVARING [Suspect]
     Active Substance: ETHINYL ESTRADIOL\ETONOGESTREL
     Dosage: UNK
     Route: 067

REACTIONS (2)
  - Pneumonia [Unknown]
  - Pulmonary embolism [Unknown]

NARRATIVE: CASE EVENT DATE: 20130819
